FAERS Safety Report 10577359 (Version 2)
Quarter: 2014Q4

REPORT INFORMATION
  Report Type: Spontaneous
  Country: BR (occurrence: BR)
  Receive Date: 20141111
  Receipt Date: 20141210
  Transmission Date: 20150529
  Serious: Yes (Other)
  Sender: FDA-Public Use
  Company Number: BR-PFIZER INC-2014309432

PATIENT
  Age: 79 Year
  Sex: Male
  Weight: 87 kg

DRUGS (1)
  1. LIPITOR [Suspect]
     Active Substance: ATORVASTATIN CALCIUM
     Indication: VENOUS OCCLUSION
     Dosage: 20 MG, 1X/DAY
     Route: 048
     Dates: start: 20060922

REACTIONS (2)
  - Diabetes mellitus [Not Recovered/Not Resolved]
  - Venous occlusion [Unknown]

NARRATIVE: CASE EVENT DATE: 2006
